FAERS Safety Report 11702864 (Version 1)
Quarter: 2015Q4

REPORT INFORMATION
  Report Type: Spontaneous
  Country: US (occurrence: US)
  Receive Date: 20151105
  Receipt Date: 20151105
  Transmission Date: 20160304
  Serious: No
  Sender: FDA-Public Use
  Company Number: US-ENDO PHARMACEUTICALS INC.-2015-002384

PATIENT
  Age: 60 Year
  Sex: Female
  Weight: 61.29 kg

DRUGS (3)
  1. ACETAMINOPHEN #3 [Suspect]
     Active Substance: ACETAMINOPHEN\CODEINE PHOSPHATE
     Indication: NEURALGIA
     Route: 048
  2. VALIUM [Concomitant]
     Active Substance: DIAZEPAM
     Indication: NEURALGIA
  3. BACLOFEN TABLETS 10MG [Concomitant]
     Active Substance: BACLOFEN
     Indication: NEURALGIA

REACTIONS (1)
  - Drug effect decreased [Not Recovered/Not Resolved]

NARRATIVE: CASE EVENT DATE: 20150713
